FAERS Safety Report 16582991 (Version 1)
Quarter: 2019Q3

REPORT INFORMATION
  Report Type: Spontaneous
  Country: FR (occurrence: FR)
  Receive Date: 20190717
  Receipt Date: 20190717
  Transmission Date: 20191004
  Serious: Yes (Other)
  Sender: FDA-Public Use
  Company Number: FR-TEVA-2019-FR-1077179

PATIENT
  Age: 69 Year
  Sex: Male
  Weight: 70 kg

DRUGS (9)
  1. VALSARTAN. [Suspect]
     Active Substance: VALSARTAN
     Indication: HYPERTENSION
     Route: 048
  2. KARDEGIC [Suspect]
     Active Substance: ASPIRIN DL-LYSINE
     Indication: PROPHYLAXIS
     Route: 048
  3. ATORVASTATIN [Suspect]
     Active Substance: ATORVASTATIN
     Indication: DYSLIPIDAEMIA
     Route: 048
  4. METFORMINE [Suspect]
     Active Substance: METFORMIN HYDROCHLORIDE
     Indication: TYPE 2 DIABETES MELLITUS
     Route: 048
  5. JANUVIA [Suspect]
     Active Substance: SITAGLIPTIN PHOSPHATE
     Indication: TYPE 2 DIABETES MELLITUS
     Route: 048
  6. PROCORALAN 5 MG, COMPRIME PELLICULE [Suspect]
     Active Substance: IVABRADINE HYDROCHLORIDE
     Indication: PRODUCT USED FOR UNKNOWN INDICATION
     Route: 048
  7. NERISONE [Concomitant]
     Active Substance: DIFLUCORTOLONE VALERATE
  8. INORIAL 20 MG, COMPRIME [Concomitant]
     Active Substance: BILASTINE
  9. SERESTA 10 MG, COMPRIME [Concomitant]
     Active Substance: OXAZEPAM

REACTIONS (1)
  - Urticaria chronic [Not Recovered/Not Resolved]

NARRATIVE: CASE EVENT DATE: 2017
